FAERS Safety Report 24529124 (Version 1)
Quarter: 2024Q4

REPORT INFORMATION
  Report Type: Spontaneous
  Country: US (occurrence: US)
  Receive Date: 20241021
  Receipt Date: 20241021
  Transmission Date: 20250115
  Serious: Yes (Other)
  Sender: LEO PHARM
  Company Number: US-LEO Pharma-374259

PATIENT
  Sex: Female

DRUGS (1)
  1. ADBRY [Suspect]
     Active Substance: TRALOKINUMAB-LDRM
     Indication: Product used for unknown indication

REACTIONS (4)
  - Ear congestion [Unknown]
  - Deafness [Unknown]
  - Arthralgia [Unknown]
  - Ear discomfort [Unknown]
